FAERS Safety Report 16943801 (Version 2)
Quarter: 2019Q4

REPORT INFORMATION
  Report Type: Spontaneous
  Country: GB (occurrence: GB)
  Receive Date: 20191022
  Receipt Date: 20191105
  Transmission Date: 20200122
  Serious: Yes (Death, Other)
  Sender: FDA-Public Use
  Company Number: GB-009507513-1910GBR011811

PATIENT
  Age: 61 Year
  Sex: Male

DRUGS (1)
  1. KEYTRUDA [Suspect]
     Active Substance: PEMBROLIZUMAB
     Indication: NON-SMALL CELL LUNG CANCER
     Dosage: CYCLICAL; 13 CYCLES
     Route: 042
     Dates: start: 20170203, end: 20180704

REACTIONS (2)
  - Malignant neoplasm progression [Fatal]
  - Immune-mediated adverse reaction [Unknown]

NARRATIVE: CASE EVENT DATE: 201908
